FAERS Safety Report 8972362 (Version 1)
Quarter: 2012Q4

REPORT INFORMATION
  Report Type: 
  Country: US (occurrence: US)
  Receive Date: 20121218
  Receipt Date: 20121218
  Transmission Date: 20130627
  Serious: Yes (Other)
  Sender: FDA-Public Use
  Company Number: CHPA2012US024937

PATIENT
  Age: 68 Year
  Sex: Female

DRUGS (1)
  1. MAALOX ANTACID/ANTIGAS RS LIQ COOL MINT [Suspect]
     Indication: GASTROOESOPHAGEAL REFLUX DISEASE
     Dosage: 4 TSP, PRN
     Route: 048

REACTIONS (6)
  - Staphylococcal infection [Recovered/Resolved]
  - Wound [Recovered/Resolved]
  - Benign neoplasm [Recovered/Resolved]
  - Hernia [Recovered/Resolved]
  - Off label use [Unknown]
  - Vomiting [Not Recovered/Not Resolved]
